FAERS Safety Report 9552538 (Version 3)
Quarter: 2014Q2

REPORT INFORMATION
  Report Type: Spontaneous
  Country: US (occurrence: US)
  Receive Date: 20130925
  Receipt Date: 20140612
  Transmission Date: 20141212
  Serious: Yes (Other)
  Sender: FDA-Public Use
  Company Number: US-PFIZER INC-2013269948

PATIENT
  Age: 57 Year
  Sex: Female
  Weight: 90.7 kg

DRUGS (5)
  1. LIPITOR [Suspect]
     Indication: BLOOD CHOLESTEROL INCREASED
     Dosage: 10 MG, DAILY
  2. LOPID [Suspect]
     Dosage: UNK
  3. PREMARIN [Suspect]
     Dosage: 1.25 MG, DAILY
  4. DETROL LA [Suspect]
     Indication: BLADDER INJURY
     Dosage: 4 MG, DAILY
  5. DETROL LA [Suspect]
     Dosage: 4 MG, DAILY

REACTIONS (10)
  - Road traffic accident [Unknown]
  - Arthritis [Unknown]
  - Insomnia [Unknown]
  - Pain [Unknown]
  - Restless legs syndrome [Unknown]
  - Muscle spasms [Unknown]
  - Nervousness [Unknown]
  - Feeling jittery [Unknown]
  - Anxiety [Unknown]
  - Stress [Unknown]
